FAERS Safety Report 9135282 (Version 1)
Quarter: 2013Q1

REPORT INFORMATION
  Report Type: Spontaneous
  Country: IT (occurrence: IT)
  Receive Date: 20130304
  Receipt Date: 20130304
  Transmission Date: 20140127
  Serious: Yes (Hospitalization)
  Sender: FDA-Public Use
  Company Number: IT-MYLANLABS-2013S1003968

PATIENT
  Age: 77 Year
  Sex: Female

DRUGS (3)
  1. FUROSEMIDE [Suspect]
     Indication: PULMONARY HYPERTENSION
     Route: 048
     Dates: start: 20120916, end: 20130120
  2. COLIMICINA [Suspect]
     Indication: ACINETOBACTER INFECTION
     Route: 030
     Dates: start: 20130107, end: 20130117
  3. CANRENOATE POTASSIUM [Suspect]
     Indication: PULMONARY HYPERTENSION
     Route: 048
     Dates: start: 20121119, end: 20130120

REACTIONS (2)
  - Hyperkalaemia [Recovered/Resolved with Sequelae]
  - Renal failure acute [Recovered/Resolved with Sequelae]
